FAERS Safety Report 21098503 (Version 1)
Quarter: 2022Q3

REPORT INFORMATION
  Report Type: Spontaneous
  Country: US (occurrence: None)
  Receive Date: 20220718
  Receipt Date: 20220718
  Transmission Date: 20221026
  Serious: No
  Sender: FDA-Public Use
  Company Number: None

PATIENT
  Sex: Male

DRUGS (1)
  1. TASIGNA [Suspect]
     Active Substance: NILOTINIB
     Indication: Chronic myeloid leukaemia
     Dosage: 300MG  TWICE DAILY ORAL?
     Route: 048
     Dates: start: 201705, end: 20220711

REACTIONS (4)
  - Pulmonary oedema [None]
  - Inflammation [None]
  - Pericardial effusion [None]
  - Therapy cessation [None]
